FAERS Safety Report 7880324-6 (Version None)
Quarter: 2011Q4

REPORT INFORMATION
  Report Type: 
  Country: None (occurrence: None)
  Receive Date: 20111101
  Receipt Date: 20111020
  Transmission Date: 20120403
  Serious: Yes (Other)
  Sender: FDA-Public Use
  Company Number: US-BAYER-200940601NA

PATIENT
  Age: 43 Year
  Sex: Male
  Weight: 109 kg

DRUGS (7)
  1. PROTAMINE SULFATE [Concomitant]
     Dosage: 425 MG, UNK
     Route: 042
     Dates: start: 20020927, end: 20020927
  2. PROPOFOL [Concomitant]
     Dosage: UNK
     Route: 042
     Dates: start: 20020927, end: 20020927
  3. HEPARIN [Concomitant]
     Dosage: 3000 U, UNK
     Route: 042
     Dates: start: 20020927, end: 20020927
  4. TRASYLOL [Suspect]
     Indication: CORONARY ARTERY BYPASS
     Dosage: UNK
     Route: 042
     Dates: start: 20020927, end: 20020927
  5. RED BLOOD CELLS [Concomitant]
     Dosage: 11 G, ONCE
     Route: 042
     Dates: start: 20020927
  6. HEPARIN [Concomitant]
     Dosage: 30000 U, UNK
     Route: 042
     Dates: start: 20020927, end: 20020927
  7. VERSED [Concomitant]
     Dosage: UNK
     Route: 042
     Dates: start: 20020927, end: 20020927

REACTIONS (12)
  - RENAL INJURY [None]
  - PAIN [None]
  - INJURY [None]
  - ANXIETY [None]
  - STRESS [None]
  - FEAR [None]
  - UNEVALUABLE EVENT [None]
  - MENTAL DISORDER [None]
  - RENAL FAILURE [None]
  - RENAL IMPAIRMENT [None]
  - EMOTIONAL DISTRESS [None]
  - ANHEDONIA [None]
